FAERS Safety Report 17568390 (Version 2)
Quarter: 2020Q2

REPORT INFORMATION
  Report Type: Spontaneous
  Country: PT (occurrence: PT)
  Receive Date: 20200320
  Receipt Date: 20200420
  Transmission Date: 20200713
  Serious: Yes (Other)
  Sender: FDA-Public Use
  Company Number: PT-SA-2020SA067521

PATIENT
  Age: 40 Year
  Sex: Female

DRUGS (5)
  1. FOLICIL [Concomitant]
     Active Substance: FOLIC ACID
     Dosage: UNK
     Route: 048
  2. LOVENOX [Suspect]
     Active Substance: ENOXAPARIN SODIUM
     Indication: PROPHYLAXIS OF ABORTION
     Dosage: 1 DF, QD (IN THE MORNING)
     Route: 058
     Dates: start: 20200207
  3. LEPICORTINOLO [PREDNISOLONE] [Concomitant]
     Active Substance: PREDNISOLONE
     Dosage: UNK
     Route: 065
  4. EUTIROX [Concomitant]
     Active Substance: LEVOTHYROXINE SODIUM
     Dosage: UNK START DATE-MANY YEARS AGO
     Route: 048
  5. PROGEFFIK [Concomitant]
     Active Substance: PROGESTERONE
     Dosage: 800 MG, QD
     Route: 048

REACTIONS (4)
  - Fatigue [Recovered/Resolved]
  - Exposure during pregnancy [Unknown]
  - Injection site erythema [Recovered/Resolved]
  - Injection site pruritus [Recovered/Resolved]

NARRATIVE: CASE EVENT DATE: 20200219
